FAERS Safety Report 7299846-4 (Version None)
Quarter: 2011Q1

REPORT INFORMATION
  Report Type: 
  Country: None (occurrence: None)
  Receive Date: 20110208
  Receipt Date: 20110124
  Transmission Date: 20110831
  Serious: Yes (Hospitalization)
  Sender: FDA-Public Use
  Company Number: DSJ-2010-15243

PATIENT
  Age: 68 Year
  Sex: Female
  Weight: 52.6 kg

DRUGS (8)
  1. PRAVASTATIN SODIUM [Suspect]
     Indication: PRODUCT USED FOR UNKNOWN INDICATION
     Dosage: PER ORAL
     Route: 048
  2. MUCODYNE (CARBOCISTEINE) (TABLET) (CARBOCISTEINE) [Suspect]
     Indication: NASOPHARYNGITIS
     Dosage: 750 MG, PER ORAL
     Route: 048
     Dates: start: 20100707, end: 20100712
  3. SUPPLEMENT (INGREDIENT UNKNOWN) [Suspect]
     Indication: PRODUCT USED FOR UNKNOWN INDICATION
     Dosage: PER ORAL
     Route: 048
  4. OLMETEC (OLMESARTAN MEDOXOMIL) (TABLETS) (OLMESARTAN [Suspect]
     Indication: ESSENTIAL HYPERTENSION
     Dosage: 20 MG, PER ORAL
     Route: 048
     Dates: start: 20091229, end: 20100714
  5. PL (INGREDIENT UNKNOWN) (GRANULES) [Suspect]
     Indication: NASOPHARYNGITIS
     Dosage: 3 GM, PER ORAL
     Route: 048
     Dates: start: 20100707, end: 20100712
  6. TRANEXAMIC ACID [Suspect]
     Indication: NASOPHARYNGITIS
     Dosage: 3 DOSAGE FORMS, PER ORAL
     Route: 048
     Dates: start: 20100707, end: 20100712
  7. CABLOCK (AZELNIDIPINE) (TABLET) (AZELNIDIPINE) [Suspect]
     Indication: ESSENTIAL HYPERTENSION
     Dosage: 16 MG, PER ORAL
     Route: 048
     Dates: end: 20100714
  8. CLARITH (CLARITHROMYCIN) (TABLET) (CLARITHROMYCIN) [Suspect]
     Indication: NASOPHARYNGITIS
     Dosage: 400 MG, PER ORAL
     Route: 048
     Dates: start: 20100707, end: 20100712

REACTIONS (2)
  - HEPATITIS ACUTE [None]
  - LIVER INJURY [None]
